FAERS Safety Report 6187255-0 (Version None)
Quarter: 2009Q2

REPORT INFORMATION
  Report Type: 
  Country: None (occurrence: None)
  Receive Date: 20090512
  Receipt Date: 20090507
  Transmission Date: 20091009
  Serious: Yes (Other)
  Sender: FDA-Public Use
  Company Number: GB-ROXANE LABORATORIES, INC.-2009-RO-00476RO

PATIENT
  Age: 16 Year

DRUGS (1)
  1. METHOTREXATE [Suspect]
     Indication: PSORIASIS
     Route: 048

REACTIONS (1)
  - PSORIASIS [None]
